FAERS Safety Report 7110771-1 (Version None)
Quarter: 2010Q4

REPORT INFORMATION
  Report Type: 
  Country: None (occurrence: None)
  Receive Date: 20101118
  Receipt Date: 20101110
  Transmission Date: 20110411
  Serious: Yes (Hospitalization)
  Sender: FDA-Public Use
  Company Number: B0684903A

PATIENT
  Age: 63 Year
  Sex: Male

DRUGS (7)
  1. ARIXTRA [Suspect]
     Dosage: 7.5MG PER DAY
     Route: 058
     Dates: start: 20100928, end: 20101005
  2. PLAVIX [Suspect]
     Dosage: 75MG PER DAY
     Route: 048
     Dates: start: 20100925, end: 20101005
  3. ASPIRIN [Suspect]
     Dosage: 100MG PER DAY
     Route: 048
     Dates: start: 20100924, end: 20101006
  4. ZESTRIL [Concomitant]
     Route: 048
  5. METOPROLOL SUCCINATE [Concomitant]
     Route: 048
  6. SORTIS [Concomitant]
     Route: 048
  7. PRASUGREL [Concomitant]
     Route: 065

REACTIONS (5)
  - DRUG INTERACTION [None]
  - HAEMATOMA [None]
  - HAEMORRHAGIC ANAEMIA [None]
  - INTRA-ABDOMINAL HAEMORRHAGE [None]
  - PRESYNCOPE [None]
